FAERS Safety Report 22006719 (Version 1)
Quarter: 2023Q1

REPORT INFORMATION
  Report Type: Spontaneous
  Country: US (occurrence: None)
  Receive Date: 20230216
  Receipt Date: 20230216
  Transmission Date: 20230418
  Serious: No
  Sender: FDA-Public Use
  Company Number: None

PATIENT
  Age: 90 Year
  Sex: Male

DRUGS (1)
  1. HYDROXYUREA [Suspect]
     Active Substance: HYDROXYUREA
     Dosage: OTHER QUANTITY : NOT AVAILABLE;?OTHER FREQUENCY : OTHER;?
     Route: 048

REACTIONS (1)
  - Squamous cell carcinoma of skin [None]

NARRATIVE: CASE EVENT DATE: 20230216
